FAERS Safety Report 8680121 (Version 2)
Quarter: 2012Q4

REPORT INFORMATION
  Report Type: 
  Country: US (occurrence: US)
  Receive Date: 20120724
  Receipt Date: 20120910
  Transmission Date: 20130627
  Serious: Yes (Hospitalization)
  Sender: FDA-Public Use
  Company Number: US-ASTRAZENECA-2012SE49325

PATIENT
  Age: 25 Year
  Sex: Female
  Weight: 87.1 kg

DRUGS (5)
  1. SYMBICORT [Suspect]
     Indication: ASTHMA
     Dosage: 160/4.5 MCG TWO PUFFS TWO TIMES A DAY
     Route: 055
  2. SYMBICORT [Suspect]
     Indication: ASTHMA
     Dosage: 160/4.5 MCG TWO PUFFS TWO TIMES A DAY
     Route: 055
  3. PREDNISONE [Concomitant]
  4. XOPENEX [Concomitant]
  5. RESCUE INHALER [Concomitant]

REACTIONS (4)
  - Pneumonia [Recovered/Resolved]
  - Weight decreased [Unknown]
  - Off label use [Unknown]
  - Drug dose omission [Unknown]
